FAERS Safety Report 15748396 (Version 1)
Quarter: 2018Q4

REPORT INFORMATION
  Report Type: Spontaneous
  Country: US (occurrence: US)
  Receive Date: 20181221
  Receipt Date: 20181221
  Transmission Date: 20190205
  Serious: No
  Sender: FDA-Public Use
  Company Number: US-GLAXOSMITHKLINE-US2018GSK221529

PATIENT
  Age: 36 Year
  Sex: Male

DRUGS (1)
  1. WELLBUTRIN XL [Suspect]
     Active Substance: BUPROPION HYDROCHLORIDE
     Indication: SOCIAL ANXIETY DISORDER
     Dosage: 300 MG, UNK
     Route: 048
     Dates: start: 20180611, end: 20180615

REACTIONS (3)
  - Agitation [Recovered/Resolved]
  - Product use in unapproved indication [Recovered/Resolved]
  - Restlessness [Recovered/Resolved]

NARRATIVE: CASE EVENT DATE: 201806
